FAERS Safety Report 6693797-1 (Version None)
Quarter: 2010Q2

REPORT INFORMATION
  Report Type: 
  Country: None (occurrence: None)
  Receive Date: 20100423
  Receipt Date: 20100419
  Transmission Date: 20101027
  Serious: Yes (Other)
  Sender: FDA-Public Use
  Company Number: BR-PFIZER INC-2010049718

PATIENT
  Age: 47 Year
  Sex: Female
  Weight: 43 kg

DRUGS (2)
  1. CELEBRA [Suspect]
     Dosage: UNK
     Route: 048
  2. CITALOPRAM [Concomitant]
     Indication: DEPRESSION
     Dosage: UNK

REACTIONS (5)
  - ABDOMINAL PAIN UPPER [None]
  - ANKLE FRACTURE [None]
  - MYALGIA [None]
  - PAIN IN EXTREMITY [None]
  - SKIN DISCOLOURATION [None]
